FAERS Safety Report 5762918-7 (Version None)
Quarter: 2008Q2

REPORT INFORMATION
  Report Type: 
  Country: None (occurrence: None)
  Receive Date: 20080609
  Receipt Date: 20080520
  Transmission Date: 20081010
  Serious: Yes (Hospitalization, Other)
  Sender: FDA-Public Use
  Company Number: US-PFIZER INC-2008043570

PATIENT
  Sex: Female
  Weight: 51.3 kg

DRUGS (3)
  1. LYRICA [Suspect]
     Indication: FIBROMYALGIA
     Dates: start: 20080401, end: 20080514
  2. ANALGESICS [Concomitant]
  3. XANAX [Concomitant]

REACTIONS (11)
  - BACK PAIN [None]
  - BLOOD POTASSIUM DECREASED [None]
  - EUPHORIC MOOD [None]
  - HALLUCINATION [None]
  - ILL-DEFINED DISORDER [None]
  - INSOMNIA [None]
  - MALAISE [None]
  - MOTION SICKNESS [None]
  - MOTOR DYSFUNCTION [None]
  - PAIN [None]
  - VOMITING [None]
